FAERS Safety Report 7522115-1 (Version None)
Quarter: 2011Q2

REPORT INFORMATION
  Report Type: 
  Country: None (occurrence: None)
  Receive Date: 20110603
  Receipt Date: 20110128
  Transmission Date: 20111010
  Serious: Yes (Other)
  Sender: FDA-Public Use
  Company Number: US-BAYER-201040723NA

PATIENT
  Age: 36 Year
  Sex: Female
  Weight: 78 kg

DRUGS (8)
  1. HYDROCHLOROTHIAZIDE [Concomitant]
  2. YASMIN [Suspect]
     Indication: CONTRACEPTION
     Route: 048
     Dates: start: 20050301, end: 20050601
  3. ACETAMINOPHEN [Concomitant]
  4. WELLBUTRIN [Concomitant]
  5. DROSPIRENONE AND ETHINYL ESTRADIOL [Suspect]
     Indication: CONTRACEPTION
     Route: 048
     Dates: start: 20080701, end: 20080801
  6. DROSPIRENONE AND ETHINYL ESTRADIOL [Suspect]
     Route: 048
     Dates: start: 20090101, end: 20090801
  7. ADVIL LIQUI-GELS [Concomitant]
  8. YASMIN [Suspect]
     Route: 048
     Dates: start: 20070101, end: 20080601

REACTIONS (3)
  - GALLBLADDER DISORDER [None]
  - BILIARY DYSKINESIA [None]
  - CHOLECYSTITIS CHRONIC [None]
